FAERS Safety Report 18098987 (Version 4)
Quarter: 2021Q3

REPORT INFORMATION
  Report Type: Spontaneous
  Country: US (occurrence: US)
  Receive Date: 20200731
  Receipt Date: 20210901
  Transmission Date: 20211014
  Serious: Yes (Other)
  Sender: FDA-Public Use
  Company Number: US-JNJFOC-20200733942

PATIENT
  Age: 43 Year
  Sex: Female

DRUGS (3)
  1. LEXAPRO [Concomitant]
     Active Substance: ESCITALOPRAM OXALATE
     Indication: HYPERTENSION
     Dates: start: 20100101
  2. ELMIRON [Suspect]
     Active Substance: PENTOSAN POLYSULFATE SODIUM
     Indication: CYSTITIS INTERSTITIAL
     Route: 048
     Dates: start: 20000101, end: 20170101
  3. PREMARIN [Concomitant]
     Active Substance: ESTROGENS, CONJUGATED
     Indication: MENOPAUSAL SYMPTOMS
     Dates: start: 19980101

REACTIONS (6)
  - Dry age-related macular degeneration [Not Recovered/Not Resolved]
  - Product use issue [Unknown]
  - Retinopathy hypertensive [Unknown]
  - Vitreous detachment [Unknown]
  - Vitreous adhesions [Unknown]
  - Off label use [Unknown]

NARRATIVE: CASE EVENT DATE: 20000101
